FAERS Safety Report 15009475 (Version 2)
Quarter: 2018Q3

REPORT INFORMATION
  Report Type: Spontaneous
  Country: US (occurrence: US)
  Receive Date: 20180614
  Receipt Date: 20180726
  Transmission Date: 20181010
  Serious: Yes (Other)
  Sender: FDA-Public Use
  Company Number: US-009507513-1806USA001340

PATIENT
  Sex: Female
  Weight: 62.13 kg

DRUGS (1)
  1. NEXPLANON [Suspect]
     Active Substance: ETONOGESTREL
     Indication: CONTRACEPTION
     Dosage: 1 DF, 68 MG EVERY 3 YEARS
     Route: 059
     Dates: start: 20170630, end: 20180511

REACTIONS (1)
  - Menstruation irregular [Recovering/Resolving]
